FAERS Safety Report 8333747-5 (Version None)
Quarter: 2012Q2

REPORT INFORMATION
  Report Type: 
  Country: None (occurrence: None)
  Receive Date: 20120503
  Receipt Date: 20120503
  Transmission Date: 20120825
  Serious: Yes (Other)
  Sender: FDA-Public Use
  Company Number: None

PATIENT
  Age: 57 Year
  Sex: Female
  Weight: 65.77 kg

DRUGS (2)
  1. SERTRALINE HYDROCHLORIDE [Suspect]
     Indication: DEPRESSION
     Dosage: |DOSAGETEXT: 100-150MG||STRENGTH: 100MG||FREQ: QD||ROUTE: ORAL|
     Route: 048
     Dates: start: 20080506, end: 20110723
  2. TRAZODONE HCL [Suspect]
     Indication: DEPRESSION
     Dosage: |DOSAGETEXT: 100MG||STRENGTH: 100MG||FREQ: QD||ROUTE: ORAL|
     Route: 048
     Dates: start: 20091018, end: 20111018

REACTIONS (3)
  - CONDITION AGGRAVATED [None]
  - DEPRESSION [None]
  - MEMORY IMPAIRMENT [None]
